FAERS Safety Report 5531131-0 (Version None)
Quarter: 2007Q4

REPORT INFORMATION
  Report Type: 
  Country: None (occurrence: None)
  Receive Date: 20071130
  Receipt Date: 20071121
  Transmission Date: 20080405
  Serious: Yes (Disabling, Other)
  Sender: FDA-Public Use
  Company Number: JP-PFIZER INC-2007098687

PATIENT
  Age: 32 Year
  Sex: Male
  Weight: 62.5 kg

DRUGS (6)
  1. SOLU-MEDROL [Suspect]
     Indication: OPTIC NEURITIS
     Dosage: DAILY DOSE:1GRAM
     Route: 042
     Dates: start: 20051123, end: 20051125
  2. GASTER [Concomitant]
  3. ISCOTIN [Concomitant]
  4. BACTRIM [Concomitant]
  5. CYCLOSPORINE [Concomitant]
  6. NEORAL [Concomitant]

REACTIONS (1)
  - HEPATITIS B [None]
